FAERS Safety Report 17684433 (Version 1)
Quarter: 2020Q2

REPORT INFORMATION
  Report Type: Spontaneous
  Country: US (occurrence: US)
  Receive Date: 20200419
  Receipt Date: 20200419
  Transmission Date: 20200714
  Serious: No
  Sender: FDA-Public Use
  Company Number: None

PATIENT
  Age: 36 Year
  Sex: Female
  Weight: 72 kg

DRUGS (5)
  1. VISBIOME [Concomitant]
  2. EMGALITY [Suspect]
     Active Substance: GALCANEZUMAB-GNLM
     Indication: MIGRAINE
     Dosage: ?          QUANTITY:1 INJECTION(S);OTHER FREQUENCY:MONTHLY;?
     Route: 061
     Dates: start: 20200418, end: 20200418
  3. EMGALITY [Concomitant]
     Active Substance: GALCANEZUMAB-GNLM
  4. ION GUT HEALTH [Concomitant]
  5. ENTYVIO [Concomitant]
     Active Substance: VEDOLIZUMAB

REACTIONS (4)
  - Skin warm [None]
  - Erythema [None]
  - Skin swelling [None]
  - Skin disorder [None]

NARRATIVE: CASE EVENT DATE: 20200418
